FAERS Safety Report 14313312 (Version 1)
Quarter: 2017Q4

REPORT INFORMATION
  Report Type: Spontaneous
  Country: US (occurrence: US)
  Receive Date: 20171220
  Receipt Date: 20171220
  Transmission Date: 20180321
  Serious: Yes (Disabling)
  Sender: FDA-Public Use
  Company Number: None

PATIENT
  Age: 61 Year
  Sex: Female
  Weight: 70.31 kg

DRUGS (1)
  1. GADOLINIUM [Suspect]
     Active Substance: GADOLINIUM

REACTIONS (7)
  - Nausea [None]
  - Alopecia [None]
  - Vomiting [None]
  - Pain in extremity [None]
  - Renal cyst [None]
  - Cognitive disorder [None]
  - Burning sensation [None]

NARRATIVE: CASE EVENT DATE: 20170926
